FAERS Safety Report 5274970-6 (Version None)
Quarter: 2007Q1

REPORT INFORMATION
  Report Type: 
  Country: None (occurrence: None)
  Receive Date: 20061207
  Receipt Date: 20051214
  Transmission Date: 20070707
  Serious: No
  Sender: FDA-Public Use
  Company Number: 2005UW18817

PATIENT
  Age: 48 Year
  Sex: Female

DRUGS (24)
  1. TOPROL-XL [Suspect]
     Indication: HYPERTENSION
     Dosage: 25 MG PO
     Route: 048
     Dates: start: 20050701
  2. LEXAPRO [Concomitant]
  3. VYTORIN [Concomitant]
  4. REQUIP [Concomitant]
  5. XANAX [Concomitant]
  6. NITROSTAT [Concomitant]
  7. SINGULAIR [Concomitant]
  8. ALDACTONE [Concomitant]
  9. QUININE [Concomitant]
  10. HUMULIN 70/30 [Concomitant]
  11. FLEXERIL [Concomitant]
  12. PROTONIX [Concomitant]
  13. VITAMIN B-12 [Concomitant]
  14. NEURONTIN [Concomitant]
  15. SLOW-K [Concomitant]
  16. ADVAIR DISKUS 100/50 [Concomitant]
  17. XOPENEX [Concomitant]
  18. ATROVENT [Concomitant]
  19. LORTAB [Concomitant]
  20. LEVOTHROID [Concomitant]
  21. ULTRAM [Concomitant]
  22. COMPAZINE [Concomitant]
  23. PROVENTIL-HFA [Concomitant]
  24. NITROQUICK [Concomitant]

REACTIONS (1)
  - MYOCARDIAL INFARCTION [None]
